FAERS Safety Report 4589737-1 (Version None)
Quarter: 2005Q1

REPORT INFORMATION
  Report Type: 
  Country: None (occurrence: None)
  Receive Date: 20050223
  Receipt Date: 20050210
  Transmission Date: 20050727
  Serious: Yes (Other)
  Sender: FDA-Public Use
  Company Number: 200511013GDDC

PATIENT
  Sex: Female
  Weight: 1.3 kg

DRUGS (1)
  1. NICODERM [Suspect]
     Indication: ILL-DEFINED DISORDER
     Route: 042

REACTIONS (3)
  - DRUG EXPOSURE DURING PREGNANCY [None]
  - PREMATURE LABOUR [None]
  - SMALL FOR DATES BABY [None]
